FAERS Safety Report 6881125-8 (Version None)
Quarter: 2010Q3

REPORT INFORMATION
  Report Type: 
  Country: None (occurrence: None)
  Receive Date: 20100727
  Receipt Date: 20100716
  Transmission Date: 20110219
  Serious: No
  Sender: FDA-Public Use
  Company Number: 2009BI033664

PATIENT
  Age: 40 Year
  Sex: Female

DRUGS (3)
  1. TYSABRI [Suspect]
     Indication: MULTIPLE SCLEROSIS
     Route: 042
     Dates: start: 20071026, end: 20080814
  2. TYSABRI [Suspect]
     Route: 042
     Dates: start: 20090527, end: 20091001
  3. TYSABRI [Suspect]
     Route: 042
     Dates: start: 20100601

REACTIONS (3)
  - H1N1 INFLUENZA [None]
  - NASOPHARYNGITIS [None]
  - SINUSITIS [None]
